FAERS Safety Report 5179035-X (Version None)
Quarter: 2006Q4

REPORT INFORMATION
  Report Type: 
  Country: None (occurrence: None)
  Receive Date: 20061214
  Receipt Date: 20061214
  Transmission Date: 20070319
  Serious: Yes (Other)
  Sender: FDA-Public Use
  Company Number: None

PATIENT
  Age: 62 Year
  Sex: Male

DRUGS (5)
  1. REVLIMID [Suspect]
     Indication: MULTIPLE MYELOMA
     Dosage: 20MG  DAILY PO
     Route: 048
     Dates: start: 20061203, end: 20061211
  2. DEXAMETHASONE [Concomitant]
  3. GABAPENTIN [Concomitant]
  4. ENDOCET [Concomitant]
  5. VICODIN [Concomitant]

REACTIONS (1)
  - NEUTROPENIA [None]
